FAERS Safety Report 15271893 (Version 1)
Quarter: 2018Q3

REPORT INFORMATION
  Report Type: Spontaneous
  Country: US (occurrence: US)
  Receive Date: 20180727
  Receipt Date: 20180727
  Transmission Date: 20181010
  Serious: No
  Sender: FDA-Public Use
  Company Number: None

PATIENT
  Age: 47 Year
  Sex: Male

DRUGS (1)
  1. IMATINIB 400MG TEVA [Suspect]
     Active Substance: IMATINIB
     Indication: MYELOID LEUKAEMIA
     Route: 048
     Dates: start: 201803

REACTIONS (3)
  - Red blood cell count decreased [None]
  - Fatigue [None]
  - Tremor [None]

NARRATIVE: CASE EVENT DATE: 201803
